FAERS Safety Report 5020572-6 (Version None)
Quarter: 2006Q2

REPORT INFORMATION
  Report Type: 
  Country: None (occurrence: None)
  Receive Date: 20060602
  Receipt Date: 20060519
  Transmission Date: 20061013
  Serious: Yes (Other)
  Sender: FDA-Public Use
  Company Number: 8017055

PATIENT
  Age: 85 Year
  Sex: Female
  Weight: 45.45 kg

DRUGS (21)
  1. DELSYM [Suspect]
     Indication: COUGH
     Dosage: 2/D PO
     Route: 048
     Dates: start: 20060513, end: 20060517
  2. COUMADIN [Suspect]
     Dosage: 5 MG
     Dates: start: 20060501
  3. CENTRUM SILVER [Concomitant]
  4. COLACE [Concomitant]
  5. DIGOXIN [Concomitant]
  6. LIPITOR [Concomitant]
  7. CELEBREX [Concomitant]
  8. SPIRIVA [Concomitant]
  9. REGLAN [Concomitant]
  10. ADVAIR DISKUS 100/50 [Concomitant]
  11. ACCUPRIL [Concomitant]
  12. PREVACID [Concomitant]
  13. XOPENEX [Concomitant]
  14. LORTAB [Concomitant]
  15. FLUCONAZOLE [Concomitant]
  16. LOPERAMIDE [Concomitant]
  17. CARDIZEM [Concomitant]
  18. IMDUR [Concomitant]
  19. FOLIC ACID [Concomitant]
  20. FERROUS SULFATE TAB [Concomitant]
  21. PHENERGAN HCL [Concomitant]

REACTIONS (7)
  - CEREBRAL HAEMORRHAGE [None]
  - DRUG INTERACTION [None]
  - HAEMORRHAGE [None]
  - HALLUCINATIONS, MIXED [None]
  - INSOMNIA [None]
  - NAUSEA [None]
  - PLASMA VISCOSITY DECREASED [None]
